FAERS Safety Report 6311847-9 (Version None)
Quarter: 2009Q3

REPORT INFORMATION
  Report Type: 
  Country: None (occurrence: None)
  Receive Date: 20090817
  Receipt Date: 20090806
  Transmission Date: 20100115
  Serious: Yes (Other)
  Sender: FDA-Public Use
  Company Number: DE-CELGENEUS-062-21880-09080516

PATIENT
  Sex: Female
  Weight: 82 kg

DRUGS (1)
  1. REVLIMID [Suspect]
     Indication: MULTIPLE MYELOMA
     Route: 048

REACTIONS (4)
  - ANAEMIA [None]
  - EYELID PTOSIS [None]
  - MOVEMENT DISORDER [None]
  - MYDRIASIS [None]
